FAERS Safety Report 15604332 (Version 1)
Quarter: 2018Q4

REPORT INFORMATION
  Report Type: Spontaneous
  Country: US (occurrence: US)
  Receive Date: 20181110
  Receipt Date: 20181110
  Transmission Date: 20190205
  Serious: No
  Sender: FDA-Public Use
  Company Number: US-IPSEN BIOPHARMACEUTICALS, INC.-2018-16923

PATIENT
  Age: 61 Year
  Sex: Female
  Weight: 83.08 kg

DRUGS (2)
  1. ASPIRIN. [Concomitant]
     Active Substance: ASPIRIN
  2. SUPREP BOWEL PREP [Suspect]
     Active Substance: MAGNESIUM SULFATE\POTASSIUM SULFATE\SODIUM SULFATE
     Indication: COLONOSCOPY
     Dosage: 1 X 6 OZ. BOTTLE 1 X PO   (SUPREP BOWEL PREP KIT)
     Route: 048
     Dates: start: 20181029, end: 20181029

REACTIONS (2)
  - Heart rate irregular [Unknown]
  - Heart rate increased [Unknown]

NARRATIVE: CASE EVENT DATE: 20181029
